FAERS Safety Report 12142095 (Version 1)
Quarter: 2016Q1

REPORT INFORMATION
  Report Type: Spontaneous
  Country: CA (occurrence: CA)
  Receive Date: 20160303
  Receipt Date: 20160303
  Transmission Date: 20160526
  Serious: Yes (Other)
  Sender: FDA-Public Use
  Company Number: CA-TEVA-639551ACC

PATIENT
  Age: 51 Year
  Sex: Male

DRUGS (1)
  1. TOPIRAMATE. [Suspect]
     Active Substance: TOPIRAMATE
     Indication: DYSTONIC TREMOR
     Dosage: 50 MILLIGRAM DAILY;
     Route: 048

REACTIONS (3)
  - Weight decreased [Unknown]
  - Tremor [Unknown]
  - Decreased appetite [Unknown]
